FAERS Safety Report 23756196 (Version 1)
Quarter: 2024Q2

REPORT INFORMATION
  Report Type: Spontaneous
  Country: US (occurrence: None)
  Receive Date: 20240417
  Receipt Date: 20240417
  Transmission Date: 20240716
  Serious: No
  Sender: FDA-Public Use
  Company Number: None

PATIENT
  Sex: Female

DRUGS (13)
  1. VIGABATRIN [Suspect]
     Active Substance: VIGABATRIN
     Indication: Epilepsy
     Dosage: FREQUENCY : TWICE A DAY;?OTHER ROUTE : G-TUBE;?
     Route: 050
  2. VIGABATRIN [Suspect]
     Active Substance: VIGABATRIN
  3. ACETYLCHOLINE CHLORIDE [Concomitant]
     Active Substance: ACETYLCHOLINE CHLORIDE
  4. DL-ALPHA LIPOIC ACID [Concomitant]
  5. ACETYLCHOLINE CHLORIDE [Concomitant]
     Active Substance: ACETYLCHOLINE CHLORIDE
  6. DL-ALPHA LIPOIC ACID [Concomitant]
  7. THIAMINE HYDROCHLORIDE [Concomitant]
     Active Substance: THIAMINE HYDROCHLORIDE
  8. PHENOBARBITAL [Concomitant]
     Active Substance: PHENOBARBITAL
  9. LEVOCARNITINE [Concomitant]
     Active Substance: LEVOCARNITINE
  10. KEPPRA [Concomitant]
     Active Substance: LEVETIRACETAM
  11. ROBINUL [Concomitant]
     Active Substance: GLYCOPYRROLATE
  12. MULTIVITAMIN CHILDRENS [Concomitant]
  13. COENZYME Q10 [Concomitant]
     Active Substance: DIETARY SUPPLEMENT\UBIDECARENONE

REACTIONS (1)
  - Gastrointestinal disorder [None]
